FAERS Safety Report 8248087-2 (Version None)
Quarter: 2012Q1

REPORT INFORMATION
  Report Type: 
  Country: None (occurrence: None)
  Receive Date: 20120330
  Receipt Date: 20120321
  Transmission Date: 20120608
  Serious: Yes (Hospitalization)
  Sender: FDA-Public Use
  Company Number: FR-JNJFOC-20120310719

PATIENT
  Age: 31 Year
  Sex: Female

DRUGS (2)
  1. REMICADE [Suspect]
     Indication: ANKYLOSING SPONDYLITIS
     Dosage: 30-JUL-2011 20TH INFUSION
     Route: 042
     Dates: start: 20081210, end: 20110713
  2. REMICADE [Suspect]
     Route: 042
     Dates: start: 20120201

REACTIONS (5)
  - HEADACHE [None]
  - ASTHENIA [None]
  - CYTOMEGALOVIRUS INFECTION [None]
  - MYALGIA [None]
  - MYOPERICARDITIS [None]
